FAERS Safety Report 5519267-1 (Version None)
Quarter: 2007Q4

REPORT INFORMATION
  Report Type: 
  Country: None (occurrence: None)
  Receive Date: 20071116
  Receipt Date: 20071108
  Transmission Date: 20080405
  Serious: Yes (Hospitalization)
  Sender: FDA-Public Use
  Company Number: GB-AVENTIS-200715277EU

PATIENT
  Sex: Male

DRUGS (1)
  1. TRENTAL [Suspect]
     Indication: DRUG USE FOR UNKNOWN INDICATION
     Dosage: DOSE: UNK

REACTIONS (2)
  - DIABETES MELLITUS [None]
  - HYPERTENSION [None]
